FAERS Safety Report 8593193-6 (Version None)
Quarter: 2012Q3

REPORT INFORMATION
  Report Type: 
  Country: None (occurrence: None)
  Receive Date: 20120814
  Receipt Date: 20120802
  Transmission Date: 20120928
  Serious: Yes (Hospitalization, Other)
  Sender: FDA-Public Use
  Company Number: NO-PFIZER INC-2012187908

PATIENT
  Age: 83 Year
  Sex: Female

DRUGS (5)
  1. ARICEPT [Suspect]
     Indication: DEMENTIA ALZHEIMER'S TYPE
     Dosage: 10 MG, 1X/DAY
     Route: 048
     Dates: end: 20120701
  2. NITROGLYCERIN [Concomitant]
     Dosage: 0.5 MG, AS NEEDED
  3. RAMIPRIL [Interacting]
     Indication: HYPERTENSION
     Dosage: 2.5 MG, 1X/DAY
     Route: 048
     Dates: end: 20120710
  4. CLOTRIMAZOLE [Concomitant]
     Dosage: UNK
     Route: 003
  5. AFIPRAN [Concomitant]
     Dosage: 10 MG UP TO 3 TIMES AS NEEDED

REACTIONS (2)
  - RENAL FAILURE [None]
  - DRUG INTERACTION [None]
